FAERS Safety Report 25663080 (Version 1)
Quarter: 2025Q3

REPORT INFORMATION
  Report Type: Spontaneous
  Country: US (occurrence: US)
  Receive Date: 20250811
  Receipt Date: 20250811
  Transmission Date: 20251020
  Serious: No
  Sender: AMGEN
  Company Number: US-AMGEN-USASP2025154653

PATIENT
  Age: 78 Year
  Sex: Female

DRUGS (4)
  1. TEPEZZA [Suspect]
     Active Substance: TEPROTUMUMAB-TRBW
     Indication: Endocrine ophthalmopathy
     Route: 040
     Dates: end: 20210512
  2. TEPEZZA [Suspect]
     Active Substance: TEPROTUMUMAB-TRBW
     Indication: Toxic goitre
  3. SOOTHE XP [Concomitant]
     Active Substance: LIGHT MINERAL OIL\MINERAL OIL
     Route: 065
  4. COMBIGAN [Concomitant]
     Active Substance: BRIMONIDINE TARTRATE\TIMOLOL MALEATE
     Route: 065

REACTIONS (3)
  - Vision blurred [Unknown]
  - Lacrimation increased [Not Recovered/Not Resolved]
  - Diplopia [Unknown]

NARRATIVE: CASE EVENT DATE: 20210601
